FAERS Safety Report 6760018-0 (Version None)
Quarter: 2010Q2

REPORT INFORMATION
  Report Type: 
  Country: None (occurrence: None)
  Receive Date: 20100604
  Receipt Date: 20100525
  Transmission Date: 20101027
  Serious: Yes (Hospitalization)
  Sender: FDA-Public Use
  Company Number: 1000014254

PATIENT
  Age: 18 Year
  Sex: Female

DRUGS (2)
  1. ESCITALOPRAM [Suspect]
     Indication: DEPRESSION
     Dates: start: 20100401
  2. BENZODIAZEPINE DERIVATIVES [Concomitant]

REACTIONS (7)
  - LOCALISED INFECTION [None]
  - LOCALISED OEDEMA [None]
  - NAUSEA [None]
  - NODULE [None]
  - PAIN [None]
  - PYREXIA [None]
  - SWELLING FACE [None]
